FAERS Safety Report 14668083 (Version 1)
Quarter: 2018Q1

REPORT INFORMATION
  Report Type: Spontaneous
  Country: US (occurrence: US)
  Receive Date: 20180322
  Receipt Date: 20180322
  Transmission Date: 20180509
  Serious: Yes (Other)
  Sender: FDA-Public Use
  Company Number: US-TORRENT-00005944

PATIENT
  Age: 32 Year
  Sex: Male

DRUGS (1)
  1. PANTOPRAZOLE SODIUM. [Suspect]
     Active Substance: PANTOPRAZOLE SODIUM
     Indication: DYSPEPSIA

REACTIONS (2)
  - Granulomatous dermatitis [Not Recovered/Not Resolved]
  - Dermatitis acneiform [Not Recovered/Not Resolved]
